FAERS Safety Report 9379902 (Version 1)
Quarter: 2013Q2

REPORT INFORMATION
  Report Type: Spontaneous
  Country: US (occurrence: None)
  Receive Date: 20130627
  Receipt Date: 20130627
  Transmission Date: 20140414
  Serious: Yes (Other)
  Sender: FDA-Public Use
  Company Number: 2012P1066600

PATIENT
  Age: 56 Year
  Sex: Female

DRUGS (6)
  1. INFUMORPH [Suspect]
     Indication: PAIN
     Route: 037
  2. INFUMORPH [Suspect]
     Indication: PAIN
     Route: 037
  3. BUPIVACAINE [Suspect]
     Indication: PAIN
     Route: 037
  4. BUPIVACAINE [Suspect]
     Indication: PAIN
     Route: 037
  5. MORPHINE [Suspect]
     Indication: PAIN
     Route: 037
  6. MORPHINE [Suspect]
     Indication: PAIN
     Route: 037

REACTIONS (4)
  - Device connection issue [None]
  - Medical device complication [None]
  - Therapeutic response decreased [None]
  - Pump reservoir issue [None]
